FAERS Safety Report 18951715 (Version 1)
Quarter: 2021Q1

REPORT INFORMATION
  Report Type: Report from Study
  Country: NL (occurrence: NL)
  Receive Date: 20210301
  Receipt Date: 20210301
  Transmission Date: 20210420
  Serious: Yes (Hospitalization, Other)
  Sender: FDA-Public Use
  Company Number: NL-ALS-000216

PATIENT
  Age: 65 Year
  Sex: Female

DRUGS (1)
  1. METFORMIN [Suspect]
     Active Substance: METFORMIN HYDROCHLORIDE
     Indication: PRODUCT USED FOR UNKNOWN INDICATION
     Route: 065

REACTIONS (7)
  - Lactic acidosis [Unknown]
  - Blood bicarbonate decreased [Unknown]
  - Drug level above therapeutic [Unknown]
  - Hyperkalaemia [Unknown]
  - Renal failure [Unknown]
  - Dehydration [Unknown]
  - Blood creatinine increased [Unknown]
